FAERS Safety Report 23030437 (Version 1)
Quarter: 2023Q4

REPORT INFORMATION
  Report Type: Report from Study
  Country: BR (occurrence: BR)
  Receive Date: 20231005
  Receipt Date: 20231005
  Transmission Date: 20240110
  Serious: Yes (Other)
  Sender: FDA-Public Use
  Company Number: BR-ABBVIE-5430966

PATIENT
  Age: 43 Year
  Sex: Female
  Weight: 118 kg

DRUGS (6)
  1. SKYRIZI [Suspect]
     Active Substance: RISANKIZUMAB-RZAA
     Indication: Psoriasis
     Dosage: FORM STRENGTH- 75 MG?DOSE FORM - SUBLINGUAL SPRAY
     Route: 058
  2. DESVENLAFAXINE [Concomitant]
     Active Substance: DESVENLAFAXINE
     Indication: Depression
     Dosage: 50 MG
     Route: 048
     Dates: start: 202306
  3. CLONAZEPAM [Concomitant]
     Active Substance: CLONAZEPAM
     Indication: Depression
     Dosage: 2.5 MG
     Route: 048
     Dates: start: 2017
  4. PROPRANOLOL [Concomitant]
     Active Substance: PROPRANOLOL HYDROCHLORIDE
     Indication: Hypertension
     Dosage: 40 MG
     Route: 048
     Dates: start: 2015
  5. AMLODIPINE [Concomitant]
     Active Substance: AMLODIPINE BESYLATE
     Indication: Hypertension
     Dosage: 5 MG
     Route: 048
     Dates: start: 2015
  6. SPIRONOLACTONE [Concomitant]
     Active Substance: SPIRONOLACTONE
     Indication: Hypertension
     Dosage: 25 MG
     Route: 048
     Dates: start: 2015

REACTIONS (6)
  - Tuberculosis [Recovered/Resolved]
  - Psoriasis [Unknown]
  - Hypoacusis [Unknown]
  - Ear inflammation [Not Recovered/Not Resolved]
  - Product administered at inappropriate site [Unknown]
  - Impaired quality of life [Not Recovered/Not Resolved]

NARRATIVE: CASE EVENT DATE: 20221201
